FAERS Safety Report 6643225-7 (Version None)
Quarter: 2010Q1

REPORT INFORMATION
  Report Type: 
  Country: None (occurrence: None)
  Receive Date: 20100319
  Receipt Date: 20100318
  Transmission Date: 20100710
  Serious: Yes (Death)
  Sender: FDA-Public Use
  Company Number: PHHY2010FR06931

PATIENT
  Sex: Female
  Weight: 63 kg

DRUGS (6)
  1. EXELON [Suspect]
     Indication: DEMENTIA ALZHEIMER'S TYPE
     Dosage: 4.6 MG
     Route: 062
     Dates: start: 20100204
  2. DILTIAZEM [Concomitant]
     Dosage: UNK
  3. HYPERIUM [Concomitant]
     Dosage: UNK
  4. MICARDIS [Concomitant]
     Dosage: UNK
  5. ZOCOR [Concomitant]
     Dosage: UNK
  6. PIASCLEDINE 300 [Concomitant]
     Dosage: UNK

REACTIONS (1)
  - DEATH [None]
